FAERS Safety Report 11751772 (Version 1)
Quarter: 2015Q4

REPORT INFORMATION
  Report Type: Spontaneous
  Country: US (occurrence: US)
  Receive Date: 20151118
  Receipt Date: 20151118
  Transmission Date: 20160304
  Serious: Yes (Hospitalization)
  Sender: FDA-Public Use
  Company Number: US-BAYER-2015-466206

PATIENT
  Age: 42 Year
  Sex: Female
  Weight: 117.1 kg

DRUGS (9)
  1. OCELLA [Suspect]
     Active Substance: DROSPIRENONE\ETHINYL ESTRADIOL
     Indication: MENSTRUAL CYCLE MANAGEMENT
  2. BENADRYL [Concomitant]
     Active Substance: DIPHENHYDRAMINE HYDROCHLORIDE
  3. FLUTICASONE [Concomitant]
     Active Substance: FLUTICASONE\FLUTICASONE PROPIONATE
     Dosage: 50 ?G, UNK
     Route: 049
     Dates: start: 20120209
  4. PROMETHAZINE - CODEINE [CODEINE PHOSPHATE,PROMETHAZINE HYDROCHLORI [Concomitant]
     Dosage: 6.25-10/5
     Dates: start: 20120222
  5. IBUPROFEN. [Concomitant]
     Active Substance: IBUPROFEN
  6. ORPHENADRINE [Concomitant]
     Active Substance: ORPHENADRINE
     Dosage: 100 MG, UNK
     Dates: start: 20120507
  7. SUDAFED [Concomitant]
     Active Substance: PSEUDOEPHEDRINE HYDROCHLORIDE
  8. OXYCODONE HYDROCHLORIDE AND ACETAMINOPHEN [Concomitant]
     Active Substance: ACETAMINOPHEN\OXYCODONE HYDROCHLORIDE
     Dosage: 5 MG-325MG
     Dates: start: 20120526
  9. FLONASE [Concomitant]
     Active Substance: FLUTICASONE PROPIONATE

REACTIONS (2)
  - Pulmonary embolism [None]
  - Deep vein thrombosis [None]

NARRATIVE: CASE EVENT DATE: 201205
